FAERS Safety Report 16295406 (Version 2)
Quarter: 2019Q3

REPORT INFORMATION
  Report Type: Other
  Country: GB (occurrence: FR)
  Receive Date: 20190509
  Receipt Date: 20190726
  Transmission Date: 20191004
  Serious: Yes (Death, Congenital Anomaly, Other)
  Sender: FDA-Public Use
  Company Number: GB-MACLEODS PHARMACEUTICALS US LTD-MAC2019021165

PATIENT

DRUGS (6)
  1. EFAVIRENZ. [Suspect]
     Active Substance: EFAVIRENZ
     Indication: PRODUCT USED FOR UNKNOWN INDICATION
     Dosage: 600 MILLIGRAM, QD, 1 OF COURSE DURING FIRST TRIMESTER
     Route: 064
     Dates: start: 20050513, end: 20050908
  2. KALETRA [Suspect]
     Active Substance: LOPINAVIR\RITONAVIR
     Indication: PRODUCT USED FOR UNKNOWN INDICATION
     Dosage: UNK, 1 OF COURSE DURING FIRST TRIMESTER
     Route: 064
     Dates: start: 20050908
  3. NEVIRAPINE 400 MG [Suspect]
     Active Substance: NEVIRAPINE
     Indication: PRODUCT USED FOR UNKNOWN INDICATION
     Dosage: 400 MG PER DAY 1 OF COURSE DURING FIRST TRIMESTER
     Route: 064
     Dates: start: 20050704
  4. DIDANOSINE. [Suspect]
     Active Substance: DIDANOSINE
     Indication: PRODUCT USED FOR UNKNOWN INDICATION
     Dosage: UNK, 1 OF COURSE DURING FIRST TRIMESTER
     Route: 064
     Dates: start: 20050523, end: 20050908
  5. EMTRIVA [Suspect]
     Active Substance: EMTRICITABINE
     Indication: PRODUCT USED FOR UNKNOWN INDICATION
     Dosage: UNK, 1 OF COURSE DURING FIRST TRIMESTER
     Route: 064
     Dates: start: 20050523
  6. COMBIVIR [Suspect]
     Active Substance: LAMIVUDINE\ZIDOVUDINE
     Indication: PRODUCT USED FOR UNKNOWN INDICATION
     Dosage: UNK, 1 OF COURSE DURING FIRST TRIMESTER6
     Route: 064
     Dates: start: 20050908

REACTIONS (3)
  - Spina bifida [Fatal]
  - Brain herniation [Fatal]
  - Foetal exposure during pregnancy [None]
